FAERS Safety Report 8075250-6 (Version None)
Quarter: 2012Q1

REPORT INFORMATION
  Report Type: 
  Country: None (occurrence: None)
  Receive Date: 20120127
  Receipt Date: 20120117
  Transmission Date: 20120608
  Serious: Yes (Death, Life-Threatening, Hospitalization)
  Sender: FDA-Public Use
  Company Number: US-JNJFOC-20110207888

PATIENT
  Sex: Male
  Weight: 108.86 kg

DRUGS (1)
  1. REMICADE [Suspect]
     Indication: PSORIATIC ARTHROPATHY
     Route: 042
     Dates: start: 20090201, end: 20100701

REACTIONS (12)
  - GUILLAIN-BARRE SYNDROME [None]
  - HOSPITALISATION [None]
  - MENINGITIS [None]
  - ENCEPHALITIS [None]
  - DEATH [None]
  - APPENDICITIS [None]
  - HERPES ZOSTER [None]
  - CARDIAC DISORDER [None]
  - WHITE BLOOD CELL COUNT INCREASED [None]
  - PARALYSIS [None]
  - BEDRIDDEN [None]
  - HALLUCINATION [None]
